FAERS Safety Report 11536893 (Version 1)
Quarter: 2015Q3

REPORT INFORMATION
  Report Type: Spontaneous
  Country: US (occurrence: None)
  Receive Date: 20150921
  Receipt Date: 20150921
  Transmission Date: 20151125
  Serious: Yes (Life-Threatening, Hospitalization, Other)
  Sender: FDA-Public Use
  Company Number: None

PATIENT
  Age: 72 Year
  Sex: Male
  Weight: 76 kg

DRUGS (11)
  1. TRAMADOL. [Concomitant]
     Active Substance: TRAMADOL
  2. LORATADINE. [Concomitant]
     Active Substance: LORATADINE
  3. DOXAZOSIN [Concomitant]
     Active Substance: DOXAZOSIN\DOXAZOSIN MESYLATE
  4. COLON ELECTROLYTE LAVAGE [Concomitant]
  5. NIFEDIPINE. [Concomitant]
     Active Substance: NIFEDIPINE
  6. AZO URINARY PAIN RELIEF MAXIMUM STRENGTH [Suspect]
     Active Substance: PHENAZOPYRIDINE HYDROCHLORIDE
     Indication: URINARY RETENTION
     Route: 048
     Dates: start: 20150824, end: 20150907
  7. BISACODYL. [Concomitant]
     Active Substance: BISACODYL
  8. OXYBUTIN [Concomitant]
     Active Substance: OXYBUTYNIN
  9. CLOPIDOGREL [Concomitant]
     Active Substance: CLOPIDOGREL BISULFATE
  10. CLONAZEPAM. [Concomitant]
     Active Substance: CLONAZEPAM
  11. ERGOCALCIFEROL. [Concomitant]
     Active Substance: ERGOCALCIFEROL

REACTIONS (6)
  - Methaemoglobinaemia [None]
  - Acute kidney injury [None]
  - Skin discolouration [None]
  - Haemolytic anaemia [None]
  - Chromaturia [None]
  - Myocardial infarction [None]

NARRATIVE: CASE EVENT DATE: 20150908
